FAERS Safety Report 18140859 (Version 3)
Quarter: 2020Q3

REPORT INFORMATION
  Report Type: Report from Study
  Country: NL (occurrence: NL)
  Receive Date: 20200812
  Receipt Date: 20200911
  Transmission Date: 20201103
  Serious: Yes (Death, Hospitalization, Other)
  Sender: FDA-Public Use
  Company Number: NL-AMGEN-NLDSL2020032649

PATIENT
  Age: 66 Year
  Sex: Female

DRUGS (20)
  1. XGEVA [Suspect]
     Active Substance: DENOSUMAB
     Indication: PROPHYLAXIS
     Dosage: 120 MILLIGRAM (70MG/ML FLACON 1.7ML), Q4WK
     Route: 058
     Dates: start: 20190419
  2. COLECALCIFEROL [Concomitant]
     Active Substance: CHOLECALCIFEROL
     Dosage: 5600IE, QWK
  3. EXEMESTAAN [Concomitant]
     Active Substance: EXEMESTANE
     Dosage: 25 MILLIGRAM, QD (1D1T)
  4. DEXAMETHASON [DEXAMETHASONE] [Concomitant]
     Active Substance: DEXAMETHASONE
     Dosage: 4 MILLIGRAM, QD
  5. MIDAZOLAM. [Concomitant]
     Active Substance: MIDAZOLAM
     Dosage: 100 MILLILITER
  6. CARBOMER [Concomitant]
     Active Substance: CARBOMER
     Dosage: 10MG/G
  7. FOLIC ACID. [Concomitant]
     Active Substance: FOLIC ACID
     Dosage: 0.5 MILLIGRAM, QD
  8. CAPECITABINE. [Concomitant]
     Active Substance: CAPECITABINE
     Dosage: 500 MILLIGRAM,1D3T
  9. PANTOPRAZOL [PANTOPRAZOLE] [Concomitant]
     Active Substance: PANTOPRAZOLE
     Dosage: 40 MILLIGRAM, QD
  10. FOLIC ACID. [Concomitant]
     Active Substance: FOLIC ACID
     Dosage: 5 MILLIGRAM, QD
  11. FENTANYL. [Concomitant]
     Active Substance: FENTANYL
     Dosage: 25UG/HR (GENERIC+DUROGESIC), QD
  12. VENLAFAXINE [Concomitant]
     Active Substance: VENLAFAXINE HYDROCHLORIDE
     Dosage: 37.5 MILLIGRAM, QD
  13. COLECALCIFEROL [Concomitant]
     Active Substance: CHOLECALCIFEROL
     Dosage: 25.000IE 1M1C
  14. OXYGEN. [Concomitant]
     Active Substance: OXYGEN
     Dosage: 100 PERCENT
  15. XGEVA [Suspect]
     Active Substance: DENOSUMAB
     Dosage: 120 MILLIGRAM 70MG/ML FLACON 1,7ML, Q4WK
     Route: 058
  16. CODEINE [Concomitant]
     Active Substance: CODEINE
     Dosage: 10 MILLIGRAM,1?2D1T
  17. MIDAZOLAM. [Concomitant]
     Active Substance: MIDAZOLAM
     Dosage: 3 MILLILITER
  18. XGEVA [Suspect]
     Active Substance: DENOSUMAB
     Dosage: 120 MILLIGRAM 70MG/ML FLACON 1,7ML, Q4WK
     Route: 058
     Dates: end: 202008
  19. PREDNISOLON [PREDNISOLONE] [Concomitant]
     Active Substance: PREDNISOLONE
     Dosage: 30 MILLIGRAM, QD (1D1T)
  20. MORPHINE [Concomitant]
     Active Substance: MORPHINE
     Dosage: 100 MILLILITER

REACTIONS (9)
  - Dyspnoea [Not Recovered/Not Resolved]
  - Haemoglobin decreased [Not Recovered/Not Resolved]
  - Transfusion [Unknown]
  - Oxygen saturation decreased [Not Recovered/Not Resolved]
  - Metastases to spinal cord [Unknown]
  - Respiratory disorder [Unknown]
  - Cough [Recovering/Resolving]
  - Fatigue [Not Recovered/Not Resolved]
  - Death [Fatal]

NARRATIVE: CASE EVENT DATE: 2020
